FAERS Safety Report 8013703 (Version 3)
Quarter: 2012Q4

REPORT INFORMATION
  Report Type: 
  Country: US (occurrence: US)
  Receive Date: 20110628
  Receipt Date: 20120907
  Transmission Date: 20130627
  Serious: Yes (Hospitalization)
  Sender: FDA-Public Use
  Company Number: US-BAYER-2011-053615

PATIENT
  Age: 48 Year
  Sex: Female
  Weight: 74.83 kg

DRUGS (12)
  1. YAZ [Suspect]
     Indication: UTERINE LEIOMYOMA
     Dosage: UNK
     Dates: start: 200801, end: 20090919
  2. VYTORIN [Concomitant]
     Indication: BLOOD CHOLESTEROL INCREASED
     Dosage: daily
     Route: 048
     Dates: start: 20090608
  3. ACIPHEX [Concomitant]
     Indication: GASTROOESOPHAGEAL REFLUX DISEASE
     Dosage: 20 mg, daily
     Route: 048
     Dates: start: 200806
  4. BUDEPRION [Concomitant]
     Indication: DEPRESSION
     Dosage: 300 mg, daily
     Route: 048
     Dates: start: 200806
  5. RANITIDINE [Concomitant]
     Indication: GASTROOESOPHAGEAL REFLUX DISEASE
     Dosage: 300 mg, daily
     Route: 048
     Dates: start: 200905
  6. CITALOPRAM [Concomitant]
     Indication: DEPRESSION
     Dosage: 20 mg, daily
     Route: 048
     Dates: start: 200906
  7. LUNESTA [Concomitant]
     Indication: INSOMNIA
     Dosage: 3 mg, daily
     Route: 048
     Dates: start: 200905, end: 200906
  8. GABAPENTIN [Concomitant]
     Indication: RESTLESS LEGS SYNDROME
     Dosage: 300 mg, daily
     Route: 048
     Dates: start: 200903
  9. LEXAPRO [Concomitant]
     Indication: DEPRESSION
     Dosage: 20 mg, UNK
     Route: 048
     Dates: start: 200806, end: 200906
  10. SEROQUEL [Concomitant]
     Indication: SUPPLEMENTATION THERAPY
     Dosage: 50 mg, UNK
     Route: 048
     Dates: start: 200811, end: 200906
  11. ASACOL [Concomitant]
  12. WELLBUTRIN [Concomitant]

REACTIONS (3)
  - Cholecystitis chronic [None]
  - Biliary dyskinesia [None]
  - Gallbladder disorder [None]
